FAERS Safety Report 5104405-5 (Version None)
Quarter: 2006Q3

REPORT INFORMATION
  Report Type: 
  Country: None (occurrence: None)
  Receive Date: 20060908
  Receipt Date: 20060908
  Transmission Date: 20061208
  Serious: Yes (Hospitalization)
  Sender: FDA-Public Use
  Company Number: None

PATIENT
  Age: 48 Year
  Sex: Male
  Weight: 81.6 kg

DRUGS (1)
  1. IBUPROFEN [Suspect]
     Dosage: #200 ONCE PO
     Route: 048

REACTIONS (8)
  - HYPERTENSION [None]
  - HYPOKALAEMIA [None]
  - INTENTIONAL OVERDOSE [None]
  - MICROCYTIC ANAEMIA [None]
  - SELF INJURIOUS BEHAVIOUR [None]
  - SKIN LACERATION [None]
  - SUICIDAL IDEATION [None]
  - SUICIDE ATTEMPT [None]
